FAERS Safety Report 6170823-X (Version None)
Quarter: 2009Q2

REPORT INFORMATION
  Report Type: 
  Country: None (occurrence: None)
  Receive Date: 20090427
  Receipt Date: 20090415
  Transmission Date: 20091009
  Serious: Yes (Hospitalization, Other)
  Sender: FDA-Public Use
  Company Number: 233474K09USA

PATIENT
  Age: 57 Year
  Sex: Female
  Weight: 81 kg

DRUGS (27)
  1. REBIF [Suspect]
     Indication: MULTIPLE SCLEROSIS
     Dosage: 22 MCG, 3 IN 1 WEEKS, SUBCUTANEOUS, 44 MCG, 3 IN 1 WEEKS, SUBCUTANEOUS
     Route: 058
     Dates: start: 20090314, end: 20090301
  2. REBIF [Suspect]
     Indication: MULTIPLE SCLEROSIS
     Dosage: 22 MCG, 3 IN 1 WEEKS, SUBCUTANEOUS, 44 MCG, 3 IN 1 WEEKS, SUBCUTANEOUS
     Route: 058
     Dates: start: 20090301
  3. ADVAIR HFA [Concomitant]
  4. ALBUTEROL INHALER (SALBUTAMOL) [Concomitant]
  5. ASPIRIN [Concomitant]
  6. BACLOFEN [Concomitant]
  7. BETHANECHOL (BETHANECHOL) [Concomitant]
  8. FOLIC ACID [Concomitant]
  9. FUROSEMIDE [Concomitant]
  10. KLOR-CON [Concomitant]
  11. LANTUS [Concomitant]
  12. LEVOTHROID [Concomitant]
  13. LISINOPRIL [Concomitant]
  14. LYRICA [Concomitant]
  15. MORPHINE SULFATE INJ [Concomitant]
  16. NAMENDA [Concomitant]
  17. NOVOLOG [Concomitant]
  18. PERICOLACE (PER-COLACE) [Concomitant]
  19. PRILOSEC [Concomitant]
  20. SPIRIVA [Concomitant]
  21. SULINDAC [Concomitant]
  22. VITAMIN WITH MINERALS (VITAMINS WITH MINERALS) [Concomitant]
  23. VITAMIN B12 [Concomitant]
  24. PROTONIX [Concomitant]
  25. STOOL SOFTENER (DOCUSATE SODIUM) [Concomitant]
  26. MULTIVITAMIN (MULTIVITAMIN) [Concomitant]
  27. OXYCODONE HCL [Concomitant]

REACTIONS (16)
  - ANKLE FRACTURE [None]
  - BLADDER DISORDER [None]
  - BLOOD GLUCOSE FLUCTUATION [None]
  - COORDINATION ABNORMAL [None]
  - DISORIENTATION [None]
  - DRUG INTERACTION [None]
  - DYSURIA [None]
  - FALL [None]
  - FATIGUE [None]
  - HYPOXIA [None]
  - MEMORY IMPAIRMENT [None]
  - MENTAL STATUS CHANGES [None]
  - MUSCULAR WEAKNESS [None]
  - PULMONARY THROMBOSIS [None]
  - SOMNOLENCE [None]
  - URINARY RETENTION [None]
